FAERS Safety Report 5587881-3 (Version None)
Quarter: 2008Q1

REPORT INFORMATION
  Report Type: 
  Country: None (occurrence: None)
  Receive Date: 20080109
  Receipt Date: 20080109
  Transmission Date: 20080703
  Serious: Yes (Hospitalization)
  Sender: FDA-Public Use
  Company Number: None

PATIENT
  Age: 71 Year
  Sex: Female
  Weight: 66 kg

DRUGS (2)
  1. ERLOTINIB 150MG GENETECH [Suspect]
     Indication: NON-SMALL CELL LUNG CANCER
     Dosage: 150MG, ORALLY QD
     Route: 048
     Dates: start: 20071219, end: 20080102
  2. DASATINIB 70MG, BRISTOL-MYERS SQUIBB [Suspect]
     Indication: NON-SMALL CELL LUNG CANCER
     Dosage: 70MG, ORALLY BID
     Route: 048
     Dates: start: 20071227, end: 20080102

REACTIONS (1)
  - CHEST PAIN [None]
